FAERS Safety Report 9282533 (Version 1)
Quarter: 2013Q2

REPORT INFORMATION
  Report Type: Spontaneous
  Country: US (occurrence: US)
  Receive Date: 20130510
  Receipt Date: 20130510
  Transmission Date: 20140414
  Serious: Yes (Other)
  Sender: FDA-Public Use
  Company Number: US-PFIZER INC-2013141545

PATIENT
  Sex: Female

DRUGS (3)
  1. GEODON [Suspect]
     Dosage: 20 MG, UNK
  2. GEODON [Suspect]
     Dosage: 20 MG, EVERY OTHER NIGHT
  3. GEODON [Suspect]
     Dosage: 20 MG, UNK

REACTIONS (8)
  - Arthropathy [Unknown]
  - Neuropathy peripheral [Unknown]
  - Anxiety [Unknown]
  - Insomnia [Unknown]
  - Hypersensitivity [Unknown]
  - Drug withdrawal syndrome [Unknown]
  - Pain in extremity [Unknown]
  - Headache [Unknown]
